FAERS Safety Report 5552815-4 (Version None)
Quarter: 2007Q4

REPORT INFORMATION
  Report Type: 
  Country: None (occurrence: None)
  Receive Date: 20071210
  Receipt Date: 20071125
  Transmission Date: 20080405
  Serious: Yes (Hospitalization)
  Sender: FDA-Public Use
  Company Number: 2007S1012410

PATIENT

DRUGS (2)
  1. ISOTRETINOIN [Suspect]
     Indication: ACNE
  2. TESTOSTERONE [Concomitant]

REACTIONS (7)
  - ACNE FULMINANS [None]
  - INFECTION [None]
  - INFLAMMATION [None]
  - NODULE [None]
  - RASH PAPULAR [None]
  - RASH PUSTULAR [None]
  - SACROILIITIS [None]
